FAERS Safety Report 7353471-5 (Version None)
Quarter: 2011Q1

REPORT INFORMATION
  Report Type: 
  Country: None (occurrence: None)
  Receive Date: 20110315
  Receipt Date: 20110308
  Transmission Date: 20110831
  Serious: Yes (Other)
  Sender: FDA-Public Use
  Company Number: US-PFIZER INC-2010181176

PATIENT
  Sex: Female
  Weight: 54.422 kg

DRUGS (3)
  1. XALATAN [Suspect]
     Indication: GLAUCOMA
     Dosage: 1 DROP IN EACH EYE AT BEDTIME
     Route: 047
     Dates: start: 20100712, end: 20101109
  2. ALPHAGAN [Concomitant]
     Indication: GLAUCOMA
     Dosage: UNK
     Route: 047
  3. AZOPT [Concomitant]
     Dosage: UNK
     Dates: start: 20101020

REACTIONS (1)
  - HYPERSENSITIVITY [None]
